FAERS Safety Report 13779373 (Version 2)
Quarter: 2017Q3

REPORT INFORMATION
  Report Type: Spontaneous
  Country: US (occurrence: US)
  Receive Date: 20170721
  Receipt Date: 20170815
  Transmission Date: 20171127
  Serious: Yes (Other)
  Sender: FDA-Public Use
  Company Number: PHEH2017US022243

PATIENT
  Age: 79 Year
  Sex: Female
  Weight: 120 kg

DRUGS (2)
  1. ASA [Concomitant]
     Active Substance: ASPIRIN
     Indication: PRODUCT USED FOR UNKNOWN INDICATION
     Dosage: 81 MG, UNK
     Route: 065
  2. ENTRESTO [Suspect]
     Active Substance: SACUBITRIL\VALSARTAN
     Indication: CARDIAC FAILURE CHRONIC
     Dosage: UNK UNK, BID
     Route: 048
     Dates: start: 20170613, end: 20170706

REACTIONS (5)
  - Renal impairment [Recovering/Resolving]
  - Blood creatinine increased [Recovering/Resolving]
  - Oedema [Unknown]
  - Brain natriuretic peptide increased [Unknown]
  - Blood urea increased [Recovering/Resolving]

NARRATIVE: CASE EVENT DATE: 20170621
